FAERS Safety Report 12233681 (Version 1)
Quarter: 2016Q2

REPORT INFORMATION
  Report Type: Spontaneous
  Country: US (occurrence: None)
  Receive Date: 20160401
  Receipt Date: 20160401
  Transmission Date: 20160815
  Serious: No
  Sender: FDA-Public Use
  Company Number: None

PATIENT
  Sex: Female

DRUGS (2)
  1. GLIPIZIDE. [Suspect]
     Active Substance: GLIPIZIDE
  2. METFORMIN [Suspect]
     Active Substance: METFORMIN HYDROCHLORIDE

REACTIONS (9)
  - Blood glucose decreased [None]
  - Pain in extremity [None]
  - Inability to afford medication [None]
  - Dysstasia [None]
  - Eye pain [None]
  - Visual impairment [None]
  - Injection site pain [None]
  - Gait disturbance [None]
  - Bone disorder [None]
